FAERS Safety Report 15129332 (Version 3)
Quarter: 2018Q3

REPORT INFORMATION
  Report Type: Report from Study
  Country: US (occurrence: US)
  Receive Date: 20180711
  Receipt Date: 20180913
  Transmission Date: 20181010
  Serious: Yes (Other)
  Sender: FDA-Public Use
  Company Number: US-GLAXOSMITHKLINE-US2018GSK119899

PATIENT
  Sex: Female

DRUGS (1)
  1. MEPOLIZUMAB [Suspect]
     Active Substance: MEPOLIZUMAB
     Indication: EOSINOPHILIC GRANULOMATOSIS WITH POLYANGIITIS
     Dosage: 300 MG, UNK
     Dates: start: 20180630

REACTIONS (20)
  - Choking sensation [Unknown]
  - Fatigue [Unknown]
  - Sluggishness [Unknown]
  - Gastric ulcer [Unknown]
  - Hernia [Unknown]
  - Back pain [Unknown]
  - Diabetes mellitus [Unknown]
  - Nausea [Unknown]
  - Cough [Unknown]
  - Decreased appetite [Unknown]
  - Eructation [Unknown]
  - Drug ineffective [Unknown]
  - Multiple allergies [Unknown]
  - Pain [Unknown]
  - Head discomfort [Unknown]
  - Vomiting [Unknown]
  - Wrong technique in device usage process [Unknown]
  - Malaise [Unknown]
  - Dyspnoea [Unknown]
  - Gastritis [Unknown]
